FAERS Safety Report 4564425-6 (Version None)
Quarter: 2005Q1

REPORT INFORMATION
  Report Type: 
  Country: None (occurrence: None)
  Receive Date: 20050128
  Receipt Date: 20040609
  Transmission Date: 20050727
  Serious: No
  Sender: FDA-Public Use
  Company Number: US-GLAXOSMITHKLINE-A0513967A

PATIENT
  Age: 32 Year
  Sex: Female

DRUGS (3)
  1. EPIVIR [Suspect]
     Indication: HIV INFECTION
     Dosage: 150MG TWICE PER DAY
     Route: 048
  2. SUSTIVA [Concomitant]
  3. STAVUDINE [Concomitant]

REACTIONS (1)
  - STOOL ANALYSIS ABNORMAL [None]
